FAERS Safety Report 20470727 (Version 1)
Quarter: 2022Q1

REPORT INFORMATION
  Report Type: Spontaneous
  Country: FR (occurrence: FR)
  Receive Date: 20220214
  Receipt Date: 20220214
  Transmission Date: 20220423
  Serious: Yes (Other)
  Sender: FDA-Public Use
  Company Number: None

PATIENT
  Age: 49 Year
  Sex: Female
  Weight: 97 kg

DRUGS (2)
  1. MEKINIST [Suspect]
     Active Substance: TRAMETINIB DIMETHYL SULFOXIDE
     Indication: Malignant melanoma
     Dosage: 1.5 MG,QD
     Route: 048
     Dates: start: 20210409, end: 20211215
  2. TAFINLAR [Suspect]
     Active Substance: DABRAFENIB MESYLATE
     Indication: Malignant melanoma
     Dosage: 4 DOSAGE FORM, QD
     Route: 048
     Dates: start: 20210409, end: 20211215

REACTIONS (3)
  - Dry eye [Unknown]
  - Dry mouth [Unknown]
  - Panniculitis [Recovering/Resolving]

NARRATIVE: CASE EVENT DATE: 20210601
